FAERS Safety Report 8807268 (Version 1)
Quarter: 2012Q4

REPORT INFORMATION
  Report Type: 
  Country: None (occurrence: US)
  Receive Date: 20120925
  Receipt Date: 20120925
  Transmission Date: 20130627
  Serious: Yes (Other)
  Sender: FDA-Public Use
  Company Number: CHPA2012US020240

PATIENT
  Age: 82 Year
  Sex: Female

DRUGS (1)
  1. KERI ADVANCED [Suspect]
     Indication: DRY SKIN
     Dosage: Unk, Unk
     Route: 061

REACTIONS (5)
  - Hip fracture [Recovered/Resolved]
  - Fall [Recovered/Resolved]
  - Dizziness [Recovered/Resolved]
  - Balance disorder [Recovered/Resolved]
  - Walking aid user [Unknown]
